FAERS Safety Report 16844479 (Version 1)
Quarter: 2019Q4

REPORT INFORMATION
  Report Type: Spontaneous
  Country: AL (occurrence: AL)
  Receive Date: 20190923
  Receipt Date: 20190923
  Transmission Date: 20200122
  Serious: No
  Sender: FDA-Public Use
  Company Number: None

PATIENT
  Age: 66 Year
  Sex: Female

DRUGS (7)
  1. METFORMIN 500 [Concomitant]
     Active Substance: METFORMIN HYDROCHLORIDE
  2. ALEVE [Concomitant]
     Active Substance: NAPROXEN SODIUM
  3. LIPITOR [Concomitant]
     Active Substance: ATORVASTATIN CALCIUM
  4. TRAMADOL 50 [Concomitant]
     Active Substance: TRAMADOL
  5. VOTRIENT [Suspect]
     Active Substance: PAZOPANIB HYDROCHLORIDE
     Indication: RENAL CANCER
     Route: 048
     Dates: start: 20190117
  6. VOTRIENT [Suspect]
     Active Substance: PAZOPANIB HYDROCHLORIDE
     Indication: METASTASES TO SPINE
     Route: 048
     Dates: start: 20190117
  7. LEXAPRO 10 [Concomitant]

REACTIONS (5)
  - Diarrhoea [None]
  - Vomiting [None]
  - Asthenia [None]
  - Fatigue [None]
  - Nausea [None]

NARRATIVE: CASE EVENT DATE: 20190418
